FAERS Safety Report 9311556 (Version 3)
Quarter: 2013Q3

REPORT INFORMATION
  Report Type: Spontaneous
  Country: US (occurrence: US)
  Receive Date: 20130528
  Receipt Date: 20130701
  Transmission Date: 20140515
  Serious: Yes (Hospitalization, Other)
  Sender: FDA-Public Use
  Company Number: US-BAXTER-2013BAX018675

PATIENT
  Age: 68 Year
  Sex: Male

DRUGS (1)
  1. DIANEAL LOW CALCIUM [Suspect]
     Indication: PERITONEAL DIALYSIS
     Route: 033
     Dates: start: 20110113

REACTIONS (4)
  - Cerebrovascular accident [Recovered/Resolved]
  - Thrombosis [Recovered/Resolved]
  - Cardiac failure [Recovered/Resolved]
  - Cardiac disorder [Recovered/Resolved]
